FAERS Safety Report 15893406 (Version 1)
Quarter: 2019Q1

REPORT INFORMATION
  Report Type: Spontaneous
  Country: US (occurrence: US)
  Receive Date: 20190130
  Receipt Date: 20190130
  Transmission Date: 20190417
  Serious: No
  Sender: FDA-Public Use
  Company Number: US-SHIRE-US201902864

PATIENT
  Age: 23 Year
  Sex: Female
  Weight: 56.24 kg

DRUGS (2)
  1. VYVANSE [Suspect]
     Active Substance: LISDEXAMFETAMINE DIMESYLATE
     Dosage: 30 MILLIGRAM, 1X/DAY:QD
     Route: 048
  2. VYVANSE [Suspect]
     Active Substance: LISDEXAMFETAMINE DIMESYLATE
     Indication: ATTENTION DEFICIT/HYPERACTIVITY DISORDER
     Dosage: 40 MILLIGRAM, 1X/DAY:QD
     Route: 048
     Dates: start: 201810

REACTIONS (10)
  - Stress [Unknown]
  - Feeling jittery [Unknown]
  - Decreased appetite [Unknown]
  - Inability to afford medication [Unknown]
  - Dissociative disorder [Unknown]
  - Product dose omission [Unknown]
  - Unevaluable event [Unknown]
  - Headache [Unknown]
  - Dry mouth [Unknown]
  - Aggression [Unknown]

NARRATIVE: CASE EVENT DATE: 201810
